FAERS Safety Report 9729452 (Version 2)
Quarter: 2013Q4

REPORT INFORMATION
  Report Type: Spontaneous
  Country: US (occurrence: US)
  Receive Date: 20131204
  Receipt Date: 20131204
  Transmission Date: 20140711
  Serious: Yes (Other)
  Sender: FDA-Public Use
  Company Number: US-GILEAD-2009-0021364

PATIENT
  Sex: Female

DRUGS (16)
  1. LETAIRIS [Suspect]
     Indication: PULMONARY ARTERIAL HYPERTENSION
     Route: 048
     Dates: start: 20081209, end: 20090330
  2. REVATIO [Concomitant]
  3. LASIX [Concomitant]
  4. NORVASC [Concomitant]
  5. WARFARIN [Concomitant]
  6. LEVOXYL [Concomitant]
  7. ALBUTEROL [Concomitant]
  8. IPRATROPIUM BROMIDE [Concomitant]
  9. RHINOCORT [Concomitant]
  10. PULMICORT [Concomitant]
  11. SIMVASTATIN [Concomitant]
  12. ALPRAZOLAM [Concomitant]
  13. SIMETHICONE [Concomitant]
  14. ULTRACET [Concomitant]
  15. NEXIUM [Concomitant]
  16. TYLENOL [Concomitant]

REACTIONS (2)
  - Oedema [Recovering/Resolving]
  - Pulmonary oedema [Recovering/Resolving]
